FAERS Safety Report 8284611-1 (Version None)
Quarter: 2012Q2

REPORT INFORMATION
  Report Type: 
  Country: None (occurrence: None)
  Receive Date: 20120413
  Receipt Date: 20111116
  Transmission Date: 20120825
  Serious: No
  Sender: FDA-Public Use
  Company Number: US-ASTRAZENECA-2011SE69853

PATIENT
  Age: 51 Year
  Sex: Male
  Weight: 65.8 kg

DRUGS (3)
  1. NEXIUM [Suspect]
     Indication: GASTROOESOPHAGEAL REFLUX DISEASE
     Dosage: DAILY
     Route: 048
  2. NEXIUM [Suspect]
     Indication: ULCER
     Dosage: DAILY
     Route: 048
  3. NEXIUM [Suspect]
     Indication: DYSPEPSIA
     Dosage: DAILY
     Route: 048

REACTIONS (3)
  - DYSPEPSIA [None]
  - GASTRIC DISORDER [None]
  - DRUG DOSE OMISSION [None]
